FAERS Safety Report 9998447 (Version 2)
Quarter: 2014Q1

REPORT INFORMATION
  Report Type: Spontaneous
  Country: US (occurrence: US)
  Receive Date: 20140312
  Receipt Date: 20140327
  Transmission Date: 20141002
  Serious: No
  Sender: FDA-Public Use
  Company Number: US-BIOGENIDEC-2014BI021789

PATIENT
  Sex: Male

DRUGS (2)
  1. AVONEX [Suspect]
     Indication: MULTIPLE SCLEROSIS
     Route: 030
     Dates: start: 20001001
  2. TECFIDERA [Concomitant]
     Indication: MULTIPLE SCLEROSIS

REACTIONS (3)
  - Mobility decreased [Recovered/Resolved]
  - General symptom [Recovered/Resolved]
  - Hypersensitivity [Recovered/Resolved]
